FAERS Safety Report 15426354 (Version 1)
Quarter: 2018Q3

REPORT INFORMATION
  Report Type: Spontaneous
  Country: US (occurrence: US)
  Receive Date: 20180925
  Receipt Date: 20180925
  Transmission Date: 20181010
  Serious: No
  Sender: FDA-Public Use
  Company Number: US-AVEDRO-AVE-2018-0166-AE

PATIENT
  Age: 32 Year
  Sex: Male

DRUGS (4)
  1. PHOTREXA VISCOUS [Suspect]
     Active Substance: RIBOFLAVIN 5^-PHOSPHATE SODIUM
     Indication: KERATOCONUS
     Dosage: 1 DROP ADMINISTERED EVERY 2 MINUTES FOR 20 MINUTES FOR A TOTAL OF 10 DROPS
     Route: 047
     Dates: start: 20180705, end: 20180705
  2. KXL SYSTEM [Suspect]
     Active Substance: DEVICE
     Indication: KERATOCONUS
     Route: 047
     Dates: start: 20180705, end: 20180705
  3. PHOTREXA [Suspect]
     Active Substance: RIBOFLAVIN 5^-PHOSPHATE SODIUM
     Indication: KERATOCONUS
     Dosage: 1 DROP ADMINISTERED EVERY 2 MINUTES FOR 10 MINUTES FOR A TOTAL OF 5 DROPS DURING THE PRE?SOAK PERIOD
     Route: 047
     Dates: start: 20180705, end: 20180705
  4. PHOTREXA [Suspect]
     Active Substance: RIBOFLAVIN 5^-PHOSPHATE SODIUM
     Dosage: FOLLOWING THE PRE?SOAK PERIOD 1 DROP ADMINISTERED EVERY 10 SECONDS FOR 2 MINUTES, REPEATED 3 TIMES F
     Route: 047
     Dates: start: 20180705, end: 20180705

REACTIONS (3)
  - Therapy cessation [Unknown]
  - Inappropriate schedule of drug administration [Unknown]
  - No adverse event [Unknown]

NARRATIVE: CASE EVENT DATE: 20180705
